FAERS Safety Report 7373249-6 (Version None)
Quarter: 2011Q1

REPORT INFORMATION
  Report Type: 
  Country: None (occurrence: None)
  Receive Date: 20110324
  Receipt Date: 20101103
  Transmission Date: 20110831
  Serious: No
  Sender: FDA-Public Use
  Company Number: US-BAYER-201023490BCC

PATIENT
  Sex: Female

DRUGS (2)
  1. ASPIRIN [Suspect]
     Indication: MIGRAINE
     Dosage: TOOK TWO 325MG ASPIRIN AT 11:00 AM, THEN ONE 325MG ASPIRIN / COUNT BOTTLE NOT REPORTED
     Route: 048
     Dates: start: 20101030
  2. BAYER QUICK RELEASE CRYSTALS [Concomitant]
     Indication: MIGRAINE
     Dosage: COUNT BOTTLE 10S
     Route: 048
     Dates: start: 20101003

REACTIONS (1)
  - MIGRAINE [None]
